FAERS Safety Report 7151853-8 (Version None)
Quarter: 2010Q4

REPORT INFORMATION
  Report Type: 
  Country: None (occurrence: None)
  Receive Date: 20101210
  Receipt Date: 20101130
  Transmission Date: 20110411
  Serious: Yes (Other)
  Sender: FDA-Public Use
  Company Number: GB-ABBOTT-10P-167-0689222-00

PATIENT
  Sex: Male

DRUGS (1)
  1. EPILIM CHRONO [Suspect]
     Indication: EPILEPSY
     Dosage: 2500MG DAILY

REACTIONS (4)
  - DRUG INEFFECTIVE [None]
  - EPILEPSY [None]
  - HEADACHE [None]
  - PRODUCT QUALITY ISSUE [None]
